FAERS Safety Report 4965193-6 (Version None)
Quarter: 2006Q1

REPORT INFORMATION
  Report Type: 
  Country: None (occurrence: None)
  Receive Date: 20060207
  Receipt Date: 20050416
  Transmission Date: 20060701
  Serious: Yes (Life-Threatening)
  Sender: FDA-Public Use
  Company Number: 243692

PATIENT
  Age: 85 Year
  Sex: Male
  Weight: 59.9 kg

DRUGS (2)
  1. NOVOLOG(INSULIN ASPART) SOLUTION FOR INJECTION, 100U/L [Suspect]
     Indication: INSULIN-REQUIRING TYPE II DIABETES MELLITUS
     Dosage: 12 IU, QD, SUBCUTANEOUS
     Route: 058
     Dates: start: 20040101
  2. LANTUS [Suspect]
     Indication: INSULIN-REQUIRING TYPE II DIABETES MELLITUS

REACTIONS (2)
  - BLOOD GLUCOSE INCREASED [None]
  - HYPOGLYCAEMIC COMA [None]
